FAERS Safety Report 12527396 (Version 4)
Quarter: 2016Q3

REPORT INFORMATION
  Report Type: Spontaneous
  Country: US (occurrence: US)
  Receive Date: 20160705
  Receipt Date: 20160923
  Transmission Date: 20161109
  Serious: Yes (Death)
  Sender: FDA-Public Use
  Company Number: US-PFIZER INC-2016313309

PATIENT
  Age: 68 Year
  Sex: Female
  Weight: 90.72 kg

DRUGS (1)
  1. TIKOSYN [Suspect]
     Active Substance: DOFETILIDE
     Indication: HEART RATE IRREGULAR
     Dosage: 500 UG, 1X/DAY
     Route: 048
     Dates: start: 20160312, end: 20160413

REACTIONS (1)
  - Death [Fatal]

NARRATIVE: CASE EVENT DATE: 20160414
